FAERS Safety Report 9332839 (Version 5)
Quarter: 2013Q3

REPORT INFORMATION
  Report Type: Report from Study
  Country: JP (occurrence: JP)
  Receive Date: 20130606
  Receipt Date: 20130814
  Transmission Date: 20140515
  Serious: Yes (Hospitalization, Other)
  Sender: FDA-Public Use
  Company Number: JP-PFIZER INC-2013166105

PATIENT
  Age: 37 Year
  Sex: Female
  Weight: 48.5 kg

DRUGS (4)
  1. CRIZOTINIB [Suspect]
     Indication: NON-SMALL CELL LUNG CANCER
     Dosage: 250 MG, 2X/DAY
     Route: 048
     Dates: start: 20121207, end: 20130521
  2. ZYVOX [Suspect]
     Dosage: 600 MG, 2X/DAY
     Dates: start: 20130524, end: 20130606
  3. MUCOSOLVAN [Concomitant]
     Dosage: 15 MG, 2X/DAY
     Route: 048
  4. MAG-LAX [Concomitant]
     Dosage: 660 MG, 2X/DAY
     Route: 048

REACTIONS (3)
  - Pyelonephritis [Recovered/Resolved with Sequelae]
  - Renal abscess [Not Recovered/Not Resolved]
  - Anaemia [Recovering/Resolving]
